FAERS Safety Report 17632005 (Version 1)
Quarter: 2020Q2

REPORT INFORMATION
  Report Type: Spontaneous
  Country: US (occurrence: US)
  Receive Date: 20200406
  Receipt Date: 20200406
  Transmission Date: 20200713
  Serious: Yes (Other)
  Sender: FDA-Public Use
  Company Number: US-SA-2020SA085108

PATIENT

DRUGS (1)
  1. ZANTAC [Suspect]
     Active Substance: RANITIDINE HYDROCHLORIDE
     Dosage: UNK

REACTIONS (13)
  - Hepatic neoplasm [Unknown]
  - Hepatic failure [Unknown]
  - Hepatitis [Unknown]
  - Arrhythmia [Unknown]
  - Nervous system disorder [Unknown]
  - Neoplasm malignant [Unknown]
  - Vitamin B12 deficiency [Unknown]
  - Platelet count decreased [Unknown]
  - Rash [Unknown]
  - Alopecia [Unknown]
  - Renal neoplasm [Unknown]
  - Tachycardia [Unknown]
  - Jaundice [Unknown]
